FAERS Safety Report 8101884-6 (Version None)
Quarter: 2012Q1

REPORT INFORMATION
  Report Type: 
  Country: None (occurrence: None)
  Receive Date: 20120131
  Receipt Date: 20120123
  Transmission Date: 20120608
  Serious: Yes (Other)
  Sender: FDA-Public Use
  Company Number: US-ASTRAZENECA-2011SE56624

PATIENT
  Age: 77 Year
  Sex: Male

DRUGS (2)
  1. CRESTOR [Suspect]
     Route: 048
  2. NEXIUM [Suspect]
     Route: 048

REACTIONS (6)
  - NEOPLASM MALIGNANT [None]
  - MACULAR DEGENERATION [None]
  - BLINDNESS [None]
  - PRECURSOR B-LYMPHOBLASTIC LYMPHOMA STAGE IV [None]
  - GLAUCOMA [None]
  - DIABETES MELLITUS [None]
